FAERS Safety Report 15499270 (Version 1)
Quarter: 2018Q4

REPORT INFORMATION
  Report Type: Spontaneous
  Country: US (occurrence: US)
  Receive Date: 20181015
  Receipt Date: 20181015
  Transmission Date: 20190205
  Serious: Yes (Other)
  Sender: FDA-Public Use
  Company Number: US-ELI_LILLY_AND_COMPANY-US201810003143

PATIENT
  Sex: Male

DRUGS (3)
  1. NOVOLIN [Concomitant]
     Active Substance: INSULIN HUMAN
     Indication: PRODUCT USED FOR UNKNOWN INDICATION
  2. HUMULIN N [Suspect]
     Active Substance: INSULIN HUMAN
     Dosage: 70 U, BID (EVERY MORNING AND EVENING)
     Route: 058
  3. HUMULIN N [Suspect]
     Active Substance: INSULIN HUMAN
     Indication: PRODUCT USED FOR UNKNOWN INDICATION
     Dosage: 70 U, BID (EVERY MORNING AND EVENING)
     Route: 058

REACTIONS (4)
  - Blood glucose increased [Recovered/Resolved]
  - Head injury [Unknown]
  - Fall [Unknown]
  - Dysstasia [Unknown]
